FAERS Safety Report 6097181-3 (Version None)
Quarter: 2009Q1

REPORT INFORMATION
  Report Type: 
  Country: None (occurrence: None)
  Receive Date: 20090227
  Receipt Date: 20090224
  Transmission Date: 20090719
  Serious: Yes (Hospitalization)
  Sender: FDA-Public Use
  Company Number: A0770002A

PATIENT
  Sex: Female

DRUGS (3)
  1. AVANDIA [Suspect]
     Dosage: 4MG TWICE PER DAY
     Route: 048
     Dates: start: 20020101, end: 20040101
  2. UNSPECIFIED MEDICATION [Suspect]
     Dosage: 25MG PER DAY
  3. UNSPECIFIED MEDICATION [Concomitant]

REACTIONS (5)
  - CHEST PAIN [None]
  - FLATULENCE [None]
  - INTRACARDIAC THROMBUS [None]
  - MYOCARDIAL INFARCTION [None]
  - OBSTRUCTION [None]
